FAERS Safety Report 25048855 (Version 1)
Quarter: 2025Q1

REPORT INFORMATION
  Report Type: Spontaneous
  Country: PL (occurrence: PL)
  Receive Date: 20250307
  Receipt Date: 20250307
  Transmission Date: 20250409
  Serious: Yes (Hospitalization)
  Sender: NOVITIUM PHARMA
  Company Number: PL-NOVITIUMPHARMA-2025PLNVP00531

PATIENT
  Age: 48 Year
  Sex: Female

DRUGS (8)
  1. HYDROXYCHLOROQUINE SULFATE [Suspect]
     Active Substance: HYDROXYCHLOROQUINE SULFATE
     Indication: Polyarteritis nodosa
  2. METHOTREXATE [Concomitant]
     Active Substance: METHOTREXATE
     Indication: Polyarteritis nodosa
  3. CYCLOSPORINE [Concomitant]
     Active Substance: CYCLOSPORINE
     Indication: Polyarteritis nodosa
  4. AZATHIOPRINE [Concomitant]
     Active Substance: AZATHIOPRINE
     Indication: Polyarteritis nodosa
  5. COLCHICINE [Concomitant]
     Active Substance: COLCHICINE
     Indication: Polyarteritis nodosa
  6. CYCLOPHOSPHAMIDE [Concomitant]
     Active Substance: CYCLOPHOSPHAMIDE
     Indication: Polyarteritis nodosa
  7. METHYLPREDNISOLONE [Concomitant]
     Active Substance: METHYLPREDNISOLONE
     Indication: Polyarteritis nodosa
     Route: 042
  8. Immune globulin [Concomitant]
     Indication: Product used for unknown indication
     Route: 042

REACTIONS (1)
  - Drug intolerance [Unknown]
